FAERS Safety Report 8554404-6 (Version None)
Quarter: 2012Q3

REPORT INFORMATION
  Report Type: 
  Country: None (occurrence: None)
  Receive Date: 20120731
  Receipt Date: 20120723
  Transmission Date: 20120928
  Serious: Yes (Life-Threatening, Hospitalization)
  Sender: FDA-Public Use
  Company Number: US-009507513-1207USA010617

PATIENT

DRUGS (5)
  1. LISINOPRIL [Concomitant]
     Dosage: 20 MG, QD
     Route: 048
  2. ASPIRIN [Concomitant]
     Route: 048
  3. ZOCOR [Suspect]
     Dosage: 80 MG, QD
     Route: 048
  4. LANOXIN [Concomitant]
     Dosage: 0.125 MG, QD
     Route: 048
  5. AMLODIPINE BESYLATE [Interacting]
     Dosage: 10 MG, QD
     Route: 048

REACTIONS (10)
  - RENAL FAILURE ACUTE [None]
  - METABOLIC ACIDOSIS [None]
  - NIGHT SWEATS [None]
  - DRUG INTERACTION [None]
  - MYOSITIS [None]
  - LISTLESS [None]
  - LIVER INJURY [None]
  - MUSCULAR WEAKNESS [None]
  - GENERAL PHYSICAL HEALTH DETERIORATION [None]
  - RHABDOMYOLYSIS [None]
